FAERS Safety Report 4269868-6 (Version None)
Quarter: 2004Q1

REPORT INFORMATION
  Report Type: 
  Country: None (occurrence: None)
  Receive Date: 20040114
  Receipt Date: 20031001
  Transmission Date: 20041129
  Serious: Yes (Death, Hospitalization)
  Sender: FDA-Public Use
  Company Number: 200312939EU

PATIENT
  Age: 53 Year
  Sex: Female

DRUGS (10)
  1. DOCETAXEL [Suspect]
     Indication: BREAST CANCER
     Route: 042
     Dates: start: 20030711, end: 20030711
  2. PANTOZOL [Concomitant]
     Indication: ABDOMINAL PAIN UPPER
     Route: 048
  3. FRAXODI [Concomitant]
     Indication: THROMBOSIS
     Route: 058
  4. KALIUM DURETTER [Concomitant]
  5. FERROGRADUMET [Concomitant]
  6. FUROSEMIDE [Concomitant]
  7. THYRAX [Concomitant]
     Indication: HYPOTHYROIDISM
     Route: 048
  8. VALIUM [Concomitant]
  9. XANAX [Concomitant]
  10. UNKNOWN DRUG [Concomitant]

REACTIONS (4)
  - HYPERCALCAEMIA [None]
  - METASTASES TO BONE [None]
  - NAUSEA [None]
  - VOMITING [None]
